FAERS Safety Report 8806599 (Version 3)
Quarter: 2012Q4

REPORT INFORMATION
  Report Type: 
  Country: US (occurrence: US)
  Receive Date: 20120925
  Receipt Date: 20121116
  Transmission Date: 20130627
  Serious: Yes (Hospitalization, Other)
  Sender: FDA-Public Use
  Company Number: US-BAYER-2012-099168

PATIENT
  Age: 24 Year
  Sex: Female
  Weight: 56.69 kg

DRUGS (5)
  1. YAZ [Suspect]
     Dosage: UNK
     Dates: start: 20050101, end: 201009
  2. VICODIN [Concomitant]
     Indication: PLEURISY
     Dosage: UNK
     Dates: start: 20050101, end: 20100801
  3. MOTRIN [Concomitant]
     Indication: PLEURISY
  4. DILAUDID [Concomitant]
     Indication: PAIN
     Dosage: PRN
  5. MORPHINE [Concomitant]
     Indication: PAIN
     Route: 042

REACTIONS (10)
  - Deep vein thrombosis [None]
  - Jugular vein thrombosis [Recovered/Resolved]
  - Subclavian vein thrombosis [None]
  - Pain [None]
  - Injury [None]
  - General physical health deterioration [None]
  - Anxiety [None]
  - Anhedonia [None]
  - Emotional distress [None]
  - Pain [None]
